FAERS Safety Report 19841039 (Version 1)
Quarter: 2021Q3

REPORT INFORMATION
  Report Type: Other
  Country: US (occurrence: US)
  Receive Date: 20210916
  Receipt Date: 20210916
  Transmission Date: 20211014
  Serious: No
  Sender: FDA-Public Use
  Company Number: US-LEADIANT BIOSCIENCES INC-2020STPI000497

PATIENT
  Sex: Male

DRUGS (3)
  1. ONDANSETRON [Concomitant]
     Active Substance: ONDANSETRON
  2. MATULANE [Suspect]
     Active Substance: PROCARBAZINE HYDROCHLORIDE
     Indication: BRAIN NEOPLASM MALIGNANT
     Dosage: 50MG, QD FOR  14 DAYS ON 8 TO 21 OF 42 DAY CYCLE
     Route: 048
     Dates: start: 20200623
  3. DEXAMETHASON [DEXAMETHASONE] [Concomitant]
     Active Substance: DEXAMETHASONE

REACTIONS (2)
  - Fatigue [Not Recovered/Not Resolved]
  - Product dose omission issue [Not Recovered/Not Resolved]
